FAERS Safety Report 8071807-7 (Version None)
Quarter: 2012Q1

REPORT INFORMATION
  Report Type: 
  Country: None (occurrence: None)
  Receive Date: 20120126
  Receipt Date: 20120117
  Transmission Date: 20120608
  Serious: No
  Sender: FDA-Public Use
  Company Number: US-BIOGENIDEC-2011BI019629

PATIENT
  Age: 50 Year
  Sex: Female

DRUGS (3)
  1. TYSABRI [Suspect]
     Route: 042
     Dates: start: 20110322, end: 20111021
  2. TYSABRI [Suspect]
     Indication: MULTIPLE SCLEROSIS
     Route: 042
     Dates: start: 20070627, end: 20090701
  3. AVONEX [Concomitant]
     Indication: MULTIPLE SCLEROSIS
     Route: 030
     Dates: start: 20030710

REACTIONS (6)
  - GAIT DISTURBANCE [None]
  - KNEE OPERATION [None]
  - BLOOD PRESSURE DIASTOLIC INCREASED [None]
  - MUSCLE SPASMS [None]
  - HEADACHE [None]
  - FATIGUE [None]
